FAERS Safety Report 8822104 (Version 1)
Quarter: 2012Q4

REPORT INFORMATION
  Report Type: Report from Study
  Country: CA (occurrence: CA)
  Receive Date: 20121003
  Receipt Date: 20121003
  Transmission Date: 20130627
  Serious: Yes (Hospitalization)
  Sender: FDA-Public Use
  Company Number: CA-JNJFOC-20120910677

PATIENT
  Sex: Male

DRUGS (9)
  1. REMICADE [Suspect]
     Indication: CROHN^S DISEASE
     Route: 042
     Dates: start: 20120907
  2. REMICADE [Suspect]
     Indication: CROHN^S DISEASE
     Route: 042
  3. REMICADE [Suspect]
     Indication: CROHN^S DISEASE
     Route: 042
     Dates: start: 20091215
  4. PREDNISONE [Concomitant]
     Route: 065
  5. IMURAN [Concomitant]
     Route: 065
  6. OMEPRAZOLE [Concomitant]
     Route: 065
  7. VITAMIN D [Concomitant]
     Route: 065
  8. CALCIUM [Concomitant]
     Route: 065
  9. PROBIOTIC [Concomitant]
     Route: 065

REACTIONS (1)
  - Physical assault [Unknown]
